FAERS Safety Report 5183059-6 (Version None)
Quarter: 2006Q4

REPORT INFORMATION
  Report Type: 
  Country: None (occurrence: None)
  Receive Date: 20061220
  Receipt Date: 20051208
  Transmission Date: 20070319
  Serious: No
  Sender: FDA-Public Use
  Company Number: US-GLAXOSMITHKLINE-A0585087A

PATIENT
  Age: 57 Year
  Sex: Female

DRUGS (1)
  1. NICODERM CQ [Suspect]
     Dates: start: 20051113

REACTIONS (6)
  - CRYING [None]
  - DEPRESSED MOOD [None]
  - DYSPNOEA [None]
  - HEART RATE INCREASED [None]
  - IRRITABILITY [None]
  - TREMOR [None]
